FAERS Safety Report 7781491-5 (Version None)
Quarter: 2011Q3

REPORT INFORMATION
  Report Type: 
  Country: None (occurrence: None)
  Receive Date: 20110927
  Receipt Date: 20110504
  Transmission Date: 20111222
  Serious: No
  Sender: FDA-Public Use
  Company Number: US-BAYER-2011-040233

PATIENT
  Sex: Female

DRUGS (2)
  1. ASPIRIN [Concomitant]
     Indication: HEADACHE
     Dosage: 2 U, UNK
  2. NAPROXEN SODIUM [Suspect]
     Dosage: 4 U, UNK
     Route: 048

REACTIONS (1)
  - DRUG INEFFECTIVE [None]
